FAERS Safety Report 9568566 (Version 2)
Quarter: 2013Q3

REPORT INFORMATION
  Report Type: Spontaneous
  Country: US (occurrence: US)
  Receive Date: 20130930
  Receipt Date: 20130930
  Transmission Date: 20140515
  Serious: No
  Sender: FDA-Public Use
  Company Number: US-AMGEN-USASP2013041145

PATIENT
  Age: 43 Year
  Sex: Female
  Weight: 54.42 kg

DRUGS (3)
  1. ENBREL [Suspect]
     Indication: PSORIATIC ARTHROPATHY
     Dosage: 50 MG, EVERY OTHER WEEK
     Route: 058
     Dates: start: 20130306
  2. MELOXICAM [Concomitant]
     Dosage: 15 MG, UNK
  3. FOLIC ACID [Concomitant]
     Dosage: 20 MG, UNK

REACTIONS (1)
  - Rash [Not Recovered/Not Resolved]
